FAERS Safety Report 8161674-5 (Version None)
Quarter: 2012Q1

REPORT INFORMATION
  Report Type: 
  Country: None (occurrence: None)
  Receive Date: 20120224
  Receipt Date: 20120214
  Transmission Date: 20120608
  Serious: Yes (Other)
  Sender: FDA-Public Use
  Company Number: BR-JNJFOC-20120208955

PATIENT
  Age: 54 Year
  Sex: Female
  Weight: 52 kg

DRUGS (6)
  1. REMICADE [Suspect]
     Dosage: THE DOSE FREQUENCY WAS CHANGED FROM 2 MONTHS EACH TO 1 MONTH 15 DAYS EACH.
     Route: 042
     Dates: start: 20120123
  2. ALENDRONATE SODIUM [Concomitant]
     Indication: OSTEOPOROSIS
     Route: 065
     Dates: start: 20110101
  3. MESALAMINE [Concomitant]
     Indication: CROHN'S DISEASE
     Route: 065
     Dates: start: 20020101
  4. REMICADE [Suspect]
     Indication: CROHN'S DISEASE
     Route: 042
     Dates: start: 20090901
  5. CALCI-MIX [Concomitant]
     Indication: OSTEOPOROSIS
     Route: 065
     Dates: start: 20110101
  6. CAPTOPRIL [Concomitant]
     Indication: HYPERTENSION
     Route: 065
     Dates: start: 20000101

REACTIONS (3)
  - BONE PAIN [None]
  - ARTHRALGIA [None]
  - FIBROMYALGIA [None]
